FAERS Safety Report 4700891-0 (Version None)
Quarter: 2005Q2

REPORT INFORMATION
  Report Type: 
  Country: None (occurrence: None)
  Receive Date: 20050624
  Receipt Date: 20050613
  Transmission Date: 20051028
  Serious: Yes (Hospitalization)
  Sender: FDA-Public Use
  Company Number: OMPQ-PR-0506L-0863

PATIENT
  Age: 15 Year
  Sex: Female

DRUGS (2)
  1. OMNIPAQUE 140 [Suspect]
     Indication: CATHETER PLACEMENT
     Dosage: 2.5 ML, SINGLE DOSE, I.T.
     Route: 038
  2. BACLOFEN [Concomitant]

REACTIONS (8)
  - CATHETER RELATED COMPLICATION [None]
  - HYPOTENSION [None]
  - HYPOTONIA [None]
  - HYPOVENTILATION [None]
  - INCORRECT ROUTE OF DRUG ADMINISTRATION [None]
  - MENTAL STATUS CHANGES [None]
  - OVERDOSE [None]
  - PROCEDURAL COMPLICATION [None]
